FAERS Safety Report 9750213 (Version 1)
Quarter: 2013Q4

REPORT INFORMATION
  Report Type: Spontaneous
  Country: US (occurrence: US)
  Receive Date: 20131212
  Receipt Date: 20131212
  Transmission Date: 20140711
  Serious: No
  Sender: FDA-Public Use
  Company Number: US-ENDO PHARMACEUTICALS INC.-BUTA20130005

PATIENT
  Sex: Female

DRUGS (3)
  1. BUTALBITAL/ACETAMINOPHEN/CAFFEINE TABLETS [Suspect]
     Indication: HEADACHE
     Dosage: 150MG/975MG/120MG
     Route: 048
  2. BUTALBITAL/ACETAMINOPHEN/CAFFEINE TABLETS [Suspect]
     Dosage: 25MG/162.5MG/20MG
     Route: 048
  3. DIAZEPAM 5MG [Concomitant]
     Indication: PRODUCT USED FOR UNKNOWN INDICATION
     Dosage: 5MG
     Route: 065

REACTIONS (2)
  - Somnolence [Unknown]
  - Nausea [Unknown]
